FAERS Safety Report 4386663-8 (Version None)
Quarter: 2004Q2

REPORT INFORMATION
  Report Type: 
  Country: None (occurrence: None)
  Receive Date: 20040629
  Receipt Date: 20040618
  Transmission Date: 20050107
  Serious: Yes (Hospitalization, Other)
  Sender: FDA-Public Use
  Company Number: PHEH2004US06675

PATIENT
  Age: 83 Year
  Sex: Female

DRUGS (8)
  1. EXELON [Suspect]
     Indication: DEMENTIA ALZHEIMER'S TYPE
     Dosage: 3 MG, BID
     Route: 048
     Dates: start: 20030901, end: 20040607
  2. LEVOXYL [Concomitant]
  3. PAXIL [Concomitant]
  4. MIACALCIN [Concomitant]
  5. OSCAL [Concomitant]
  6. VITAMIN D [Concomitant]
  7. LACTAID [Concomitant]
  8. SORBITOL [Concomitant]

REACTIONS (3)
  - DEHYDRATION [None]
  - HYPONATRAEMIA [None]
  - PEMPHIGOID [None]
